FAERS Safety Report 6094613-1 (Version None)
Quarter: 2009Q1

REPORT INFORMATION
  Report Type: 
  Country: None (occurrence: None)
  Receive Date: 20090226
  Receipt Date: 20090218
  Transmission Date: 20090719
  Serious: Yes (Other)
  Sender: FDA-Public Use
  Company Number: PHBS2009IT00865

PATIENT
  Age: 59 Year
  Sex: Male

DRUGS (4)
  1. CYCLOSPORINE [Suspect]
     Indication: LIVER TRANSPLANT
     Dosage: 175 MG/DAY
  2. PEGASYS [Suspect]
     Dosage: 180 UG/WEEK
  3. MYCOPHENOLATE MOFETIL [Concomitant]
     Indication: LIVER TRANSPLANT
  4. STEROIDS NOS [Concomitant]
     Indication: LIVER TRANSPLANT

REACTIONS (6)
  - AUTOIMMUNE HEPATITIS [None]
  - HEPATIC ENZYME INCREASED [None]
  - HEPATIC FIBROSIS [None]
  - HEPATITIS C [None]
  - POLYARTHRITIS [None]
  - THROMBOCYTOPENIA [None]
